FAERS Safety Report 8139689-2 (Version None)
Quarter: 2012Q1

REPORT INFORMATION
  Report Type: 
  Country: None (occurrence: None)
  Receive Date: 20120215
  Receipt Date: 20120210
  Transmission Date: 20120608
  Serious: Yes (Hospitalization)
  Sender: FDA-Public Use
  Company Number: PHHO2011LV07854

PATIENT
  Sex: Male
  Weight: 76 kg

DRUGS (1)
  1. QAB149 [Suspect]
     Indication: CHRONIC OBSTRUCTIVE PULMONARY DISEASE
     Dosage: 150 UG, UNK
     Route: 048
     Dates: start: 20100429, end: 20110505

REACTIONS (2)
  - GLAUCOMA [None]
  - CATARACT [None]
